FAERS Safety Report 22178601 (Version 1)
Quarter: 2023Q2

REPORT INFORMATION
  Report Type: Report from Study
  Country: AR (occurrence: AR)
  Receive Date: 20230405
  Receipt Date: 20230405
  Transmission Date: 20230721
  Serious: Yes (Other)
  Sender: FDA-Public Use
  Company Number: AR-GILEAD-2023-0622843

PATIENT
  Age: 67 Year
  Sex: Female

DRUGS (2)
  1. EMTRICITABINE\TENOFOVIR DISOPROXIL FUMARATE [Suspect]
     Active Substance: EMTRICITABINE\TENOFOVIR DISOPROXIL FUMARATE
     Indication: HIV infection
     Dosage: 2 PILLS DAILY
     Route: 048
     Dates: end: 202211
  2. MARAVIROC [Concomitant]
     Active Substance: MARAVIROC

REACTIONS (1)
  - Osteoporosis [Unknown]
